FAERS Safety Report 18109092 (Version 1)
Quarter: 2020Q3

REPORT INFORMATION
  Report Type: Spontaneous
  Country: FR (occurrence: FR)
  Receive Date: 20200804
  Receipt Date: 20200804
  Transmission Date: 20201103
  Serious: Yes (Death, Life-Threatening, Hospitalization, Other)
  Sender: FDA-Public Use
  Company Number: FR-ARROWPHARMA-2016SP019226

PATIENT
  Age: 63 Year
  Sex: Female

DRUGS (7)
  1. SEVIKAR [Suspect]
     Active Substance: AMLODIPINE BESYLATE\OLMESARTAN MEDOXOMIL
     Indication: PRODUCT USED FOR UNKNOWN INDICATION
     Dosage: 10 MG (129 TABLETS) (1.29 G OF AMLODIPINE AND 5.16 G OF OLMESARTAN)
     Route: 048
  2. CITALOPRAM [Suspect]
     Active Substance: CITALOPRAM HYDROBROMIDE
     Indication: PRODUCT USED FOR UNKNOWN INDICATION
     Dosage: UNK
     Route: 065
  3. ZOLPIDEM [Suspect]
     Active Substance: ZOLPIDEM TARTRATE
     Indication: PRODUCT USED FOR UNKNOWN INDICATION
     Dosage: UNK
     Route: 065
  4. SEROPLEX [Suspect]
     Active Substance: ESCITALOPRAM OXALATE
     Indication: PRODUCT USED FOR UNKNOWN INDICATION
     Dosage: 10 MG, (28 TABLETS) (280 MG OF ESCITALOPRAM)
     Route: 048
  5. ATARAX [Suspect]
     Active Substance: HYDROXYZINE HYDROCHLORIDE
     Indication: PRODUCT USED FOR UNKNOWN INDICATION
     Dosage: 25 MG (28 TABLETS) (700 MG OF HYDROXYZINE), 28 TABLETS
     Route: 048
  6. LYSANXIA [Suspect]
     Active Substance: PRAZEPAM
     Indication: PRODUCT USED FOR UNKNOWN INDICATION
     Dosage: 10 MG, (42 TABLETS) (420 MG OF PRAZEPAM)
     Route: 048
  7. NORDAZEPAM [Suspect]
     Active Substance: NORDAZEPAM
     Indication: PRODUCT USED FOR UNKNOWN INDICATION
     Dosage: UNK
     Route: 065

REACTIONS (14)
  - Loss of consciousness [Unknown]
  - Acute kidney injury [Fatal]
  - Intentional overdose [Fatal]
  - Hyperlactacidaemia [Unknown]
  - Acute hepatic failure [Fatal]
  - Toxicity to various agents [Fatal]
  - Bezoar [Recovered/Resolved]
  - Gastrointestinal ischaemia [Fatal]
  - Cardiogenic shock [Fatal]
  - Shock [Fatal]
  - Skin necrosis [Unknown]
  - Coma [Unknown]
  - Multiple organ dysfunction syndrome [Fatal]
  - Metabolic acidosis [Unknown]
